FAERS Safety Report 4426862-X (Version None)
Quarter: 2004Q3

REPORT INFORMATION
  Report Type: 
  Country: None (occurrence: None)
  Receive Date: 20040811
  Receipt Date: 20040722
  Transmission Date: 20050211
  Serious: Yes (Life-Threatening)
  Sender: FDA-Public Use
  Company Number: FR_040704495

PATIENT
  Age: 34 Year
  Sex: Female

DRUGS (4)
  1. ZYPREXA [Suspect]
     Dosage: 20 MG DAY
     Dates: start: 20040331, end: 20040331
  2. PROZAC [Suspect]
     Indication: DEPRESSION
     Dosage: 20 MG/1 DAY
     Dates: start: 20040327, end: 20040330
  3. TERCIAN (CYAMEMAZINE) [Concomitant]
  4. RIVOTRIL (CLONAZEPAM) [Concomitant]

REACTIONS (5)
  - BRADYCARDIA [None]
  - ELECTROCARDIOGRAM QT CORRECTED INTERVAL PROLONGED [None]
  - HEART RATE INCREASED [None]
  - SOMNOLENCE [None]
  - VENTRICULAR EXTRASYSTOLES [None]
